FAERS Safety Report 23012334 (Version 3)
Quarter: 2025Q2

REPORT INFORMATION
  Report Type: Spontaneous
  Country: US (occurrence: US)
  Receive Date: 20230930
  Receipt Date: 20250612
  Transmission Date: 20250716
  Serious: Yes (Hospitalization, Other)
  Sender: SANOFI AVENTIS
  Company Number: US-SA-SAC20230929000161

PATIENT
  Age: 70 Year
  Sex: Male
  Weight: 86.183 kg

DRUGS (12)
  1. DUPIXENT [Suspect]
     Active Substance: DUPILUMAB
     Indication: Nasal polyps
     Dosage: 200 MG, QOW
     Route: 058
     Dates: start: 20210121
  2. EPINEPHRINE [Concomitant]
     Active Substance: EPINEPHRINE
  3. IBUPROFEN [Concomitant]
     Active Substance: IBUPROFEN
  4. VITAMIN C [Concomitant]
     Active Substance: ASCORBIC ACID
  5. VITAMIN D NOS [Concomitant]
     Active Substance: CHOLECALCIFEROL\ERGOCALCIFEROL
  6. CALCIUM [Concomitant]
     Active Substance: CALCIUM
  7. ALLEGRA ALLERGY [Concomitant]
     Active Substance: FEXOFENADINE HYDROCHLORIDE
  8. PULMOCARE [MINERALS NOS;VITAMINS NOS] [Concomitant]
  9. GLUCOSAMINE [Concomitant]
     Active Substance: GLUCOSAMINE
  10. DILTIAZEM [Concomitant]
     Active Substance: DILTIAZEM
  11. GLUCOSAMINE SULFATE [Concomitant]
     Active Substance: GLUCOSAMINE SULFATE
  12. OXYGEN [Concomitant]
     Active Substance: OXYGEN

REACTIONS (4)
  - Atrial fibrillation [Unknown]
  - Intentional product misuse [Unknown]
  - Incorrect dose administered [Unknown]
  - Drug ineffective [Unknown]

NARRATIVE: CASE EVENT DATE: 20210121
